FAERS Safety Report 17368566 (Version 1)
Quarter: 2020Q1

REPORT INFORMATION
  Report Type: Spontaneous
  Country: US (occurrence: US)
  Receive Date: 20200120
  Receipt Date: 20200120
  Transmission Date: 20200409
  Serious: No
  Sender: FDA-Public Use
  Company Number: None

PATIENT
  Age: 66 Year
  Sex: Male

DRUGS (1)
  1. EPCLUSA [Suspect]
     Active Substance: SOFOSBUVIR\VELPATASVIR
     Dosage: ?          OTHER DOSE:400MG/100MG;?
     Route: 048
     Dates: start: 20191202

REACTIONS (3)
  - Unhealthy diet [None]
  - Blood glucose increased [None]
  - Exercise lack of [None]

NARRATIVE: CASE EVENT DATE: 20200120
